FAERS Safety Report 21999732 (Version 1)
Quarter: 2023Q1

REPORT INFORMATION
  Report Type: Spontaneous
  Country: US (occurrence: US)
  Receive Date: 20230216
  Receipt Date: 20230216
  Transmission Date: 20230417
  Serious: Yes (Other)
  Sender: FDA-Public Use
  Company Number: US-BRISTOL-MYERS SQUIBB COMPANY-2023-021876

PATIENT
  Age: 85 Year
  Sex: Female
  Weight: 78.47 kg

DRUGS (1)
  1. REVLIMID [Suspect]
     Active Substance: LENALIDOMIDE
     Indication: Plasma cell myeloma
     Route: 048
     Dates: start: 20180701

REACTIONS (3)
  - Diarrhoea [Recovering/Resolving]
  - Lethargy [Recovering/Resolving]
  - Dementia [Recovering/Resolving]
